FAERS Safety Report 7832860-6 (Version None)
Quarter: 2011Q4

REPORT INFORMATION
  Report Type: 
  Country: None (occurrence: None)
  Receive Date: 20111024
  Receipt Date: 20070808
  Transmission Date: 20120403
  Serious: No
  Sender: FDA-Public Use
  Company Number: 2007BI017271

PATIENT
  Age: 46 Year
  Sex: Male

DRUGS (3)
  1. TYSABRI [Suspect]
     Route: 042
     Dates: start: 20070420
  2. TYSABRI [Suspect]
     Indication: MULTIPLE SCLEROSIS
     Route: 042
     Dates: start: 20040101, end: 20050101
  3. AVONEX [Concomitant]
     Indication: MULTIPLE SCLEROSIS
     Route: 030
     Dates: start: 20000601

REACTIONS (3)
  - VISION BLURRED [None]
  - MULTIPLE SCLEROSIS RELAPSE [None]
  - DIPLOPIA [None]
